FAERS Safety Report 21680892 (Version 1)
Quarter: 2022Q4

REPORT INFORMATION
  Report Type: Spontaneous
  Country: US (occurrence: None)
  Receive Date: 20221202
  Receipt Date: 20221202
  Transmission Date: 20230113
  Serious: Yes (Hospitalization)
  Sender: FDA-Public Use
  Company Number: None

PATIENT
  Age: 70 Year
  Sex: Female
  Weight: 107.95 kg

DRUGS (2)
  1. GEMCITABINE HYDROCHLORIDE [Suspect]
     Active Substance: GEMCITABINE HYDROCHLORIDE
     Dates: end: 20221121
  2. PACLITAXEL [Suspect]
     Active Substance: PACLITAXEL
     Dates: end: 20221121

REACTIONS (4)
  - Pyrexia [None]
  - Sepsis [None]
  - Sinus tachycardia [None]
  - Deep vein thrombosis [None]

NARRATIVE: CASE EVENT DATE: 20221123
